FAERS Safety Report 25704234 (Version 1)
Quarter: 2025Q3

REPORT INFORMATION
  Report Type: Report from Study
  Country: US (occurrence: US)
  Receive Date: 20250820
  Receipt Date: 20250820
  Transmission Date: 20251021
  Serious: Yes (Other)
  Sender: ALEXION PHARMACEUTICALS
  Company Number: US-AstraZeneca-CH-00930408A

PATIENT
  Age: 78 Year
  Sex: Female

DRUGS (8)
  1. DAPAGLIFLOZIN [Suspect]
     Active Substance: DAPAGLIFLOZIN
     Dosage: 10 MILLIGRAM, QD
  2. BUMETANIDE [Concomitant]
     Active Substance: BUMETANIDE
     Route: 065
  3. BACILLUS COAGULANS [Concomitant]
     Active Substance: BACILLUS COAGULANS
     Route: 065
  4. ASCORBIC ACID [Concomitant]
     Active Substance: ASCORBIC ACID
     Route: 065
  5. RIVAROXABAN [Concomitant]
     Active Substance: RIVAROXABAN
     Route: 065
  6. LEVOTHYROXINE [Concomitant]
     Active Substance: LEVOTHYROXINE
     Route: 065
  7. ERYTHROMYCIN [Concomitant]
     Active Substance: ERYTHROMYCIN
     Route: 065
  8. TRAZODONE [Concomitant]
     Active Substance: TRAZODONE HYDROCHLORIDE
     Route: 065

REACTIONS (17)
  - Adverse drug reaction [Unknown]
  - Chronic kidney disease [Unknown]
  - Diverticulitis [Unknown]
  - Cardiac failure congestive [Unknown]
  - Acute kidney injury [Unknown]
  - Major depression [Unknown]
  - Hypothyroidism [Unknown]
  - Atrial fibrillation [Unknown]
  - Knee deformity [Unknown]
  - Osteoarthritis [Unknown]
  - Arthritis [Unknown]
  - Bradycardia [Unknown]
  - Essential hypertension [Unknown]
  - Dyslipidaemia [Unknown]
  - Obesity [Unknown]
  - Obstructive sleep apnoea syndrome [Unknown]
  - Psoriasis [Unknown]
